FAERS Safety Report 8770452 (Version 2)
Quarter: 2012Q4

REPORT INFORMATION
  Report Type: 
  Country: US (occurrence: US)
  Receive Date: 20120906
  Receipt Date: 20120921
  Transmission Date: 20130627
  Serious: Yes (Other)
  Sender: FDA-Public Use
  Company Number: US-ASTRAZENECA-2012SE65474

PATIENT
  Age: 48 Year
  Sex: Female
  Weight: 64 kg

DRUGS (6)
  1. SEROQUEL XR [Suspect]
     Indication: BIPOLAR DISORDER
     Route: 048
     Dates: start: 20091104
  2. LIBRAX [Concomitant]
     Indication: MUSCLE SPASMS
     Route: 048
  3. CYMBALTA [Concomitant]
     Indication: DEPRESSION
     Route: 048
     Dates: start: 20091104
  4. LEVOTHYROXINE [Concomitant]
     Indication: HYPOTHYROIDISM
     Route: 048
  5. PROTONIX [Concomitant]
     Indication: GASTROOESOPHAGEAL REFLUX DISEASE
     Route: 048
  6. KLONOPIN [Concomitant]
     Indication: ANXIETY
     Route: 048
     Dates: start: 20091104

REACTIONS (2)
  - Breast cancer [Recovering/Resolving]
  - Chronic obstructive pulmonary disease [Unknown]
